FAERS Safety Report 18151423 (Version 2)
Quarter: 2020Q3

REPORT INFORMATION
  Report Type: Report from Study
  Country: NL (occurrence: NL)
  Receive Date: 20200814
  Receipt Date: 20200915
  Transmission Date: 20201103
  Serious: Yes (Hospitalization)
  Sender: FDA-Public Use
  Company Number: NL-BAYER-2020-156587

PATIENT
  Age: 11 Year
  Sex: Female
  Weight: 41.9 kg

DRUGS (13)
  1. BECLOMETASONE;FORMOTEROL [Concomitant]
     Active Substance: BECLOMETHASONE\FORMOTEROL
     Indication: ASTHMA
     Dosage: 2 DF, BID
     Route: 055
     Dates: start: 20200721
  2. FLUTICASONE. [Concomitant]
     Active Substance: FLUTICASONE
     Indication: RHINITIS ALLERGIC
     Dosage: 2 DROP, QD
     Route: 045
     Dates: start: 20200721
  3. ONDANSETRON [Concomitant]
     Active Substance: ONDANSETRON
     Indication: PROPHYLAXIS OF NAUSEA AND VOMITING
     Dosage: 4 MG, TID, PRN
     Route: 048
     Dates: start: 20200723
  4. PARACETAMOL [Concomitant]
     Active Substance: ACETAMINOPHEN
     Dosage: 500 MG, QID
     Route: 048
     Dates: start: 20200805, end: 20200808
  5. MONTELUCAST [Concomitant]
     Active Substance: MONTELUKAST SODIUM
     Indication: ASTHMA
     Dosage: 5 MG, QD
     Route: 048
     Dates: start: 20200721
  6. DICLOFENAC [Concomitant]
     Active Substance: DICLOFENAC
     Indication: NEURALGIA
     Dosage: 25 MG, TID
     Route: 054
     Dates: start: 20200723, end: 20200807
  7. LAROTRECTINIB [Suspect]
     Active Substance: LAROTRECTINIB
     Indication: SOFT TISSUE NEOPLASM
     Dosage: 100 MG, BID
     Route: 048
     Dates: start: 20200723, end: 20200808
  8. LAROTRECTINIB [Suspect]
     Active Substance: LAROTRECTINIB
     Indication: SARCOMA
  9. GABAPENTIN. [Concomitant]
     Active Substance: GABAPENTIN
     Indication: NEURALGIA
     Dosage: 200 MG, TID
     Route: 048
     Dates: start: 20200723
  10. DESLORATADINE. [Concomitant]
     Active Substance: DESLORATADINE
     Indication: HYPERSENSITIVITY
     Dosage: 5 MG, QD
     Route: 048
     Dates: start: 20200721, end: 20200807
  11. GABAPENTIN. [Concomitant]
     Active Substance: GABAPENTIN
     Indication: TUMOUR PAIN
  12. TRAMADOL. [Concomitant]
     Active Substance: TRAMADOL
     Indication: NEURALGIA
     Dosage: 40 MG, PRN
     Route: 048
     Dates: start: 20200723, end: 20200807
  13. ESOMEPRAZOL [ESOMEPRAZOLE] [Concomitant]
     Active Substance: ESOMEPRAZOLE
     Indication: DYSPEPSIA
     Dosage: 10 MG, QD
     Route: 048
     Dates: start: 20200729, end: 20200809

REACTIONS (2)
  - Hyperventilation [Recovering/Resolving]
  - Urticaria [Recovering/Resolving]

NARRATIVE: CASE EVENT DATE: 20200730
